FAERS Safety Report 18355422 (Version 2)
Quarter: 2020Q4

REPORT INFORMATION
  Report Type: Report from Study
  Country: US (occurrence: US)
  Receive Date: 20201007
  Receipt Date: 20201223
  Transmission Date: 20210114
  Serious: Yes (Hospitalization)
  Sender: FDA-Public Use
  Company Number: US-JNJFOC-A-US2016-139656

PATIENT
  Age: 40 Year
  Sex: Female
  Weight: 88.53 kg

DRUGS (13)
  1. UPTRAVI [Suspect]
     Active Substance: SELEXIPAG
     Route: 048
  2. ADCIRCA [Concomitant]
     Active Substance: TADALAFIL
  3. UPTRAVI [Suspect]
     Active Substance: SELEXIPAG
     Dosage: 400 MCG, BID
     Route: 048
     Dates: start: 20160714
  4. ZYRTEC [Suspect]
     Active Substance: CETIRIZINE HYDROCHLORIDE
     Indication: PRODUCT USED FOR UNKNOWN INDICATION
     Route: 065
  5. LETAIRIS [Suspect]
     Active Substance: AMBRISENTAN
     Indication: PULMONARY ARTERIAL HYPERTENSION
     Dosage: 10 MG, QD
     Route: 065
     Dates: start: 20160331
  6. TREPROSTINIL DIOLAMIN [Suspect]
     Active Substance: TREPROSTINIL DIOLAMINE
     Indication: PULMONARY ARTERIAL HYPERTENSION
     Dosage: 0.75 MG, TID
     Route: 048
     Dates: start: 20160512, end: 20160713
  7. LEVOCETIRIZINE [Concomitant]
     Active Substance: LEVOCETIRIZINE
  8. UPTRAVI [Suspect]
     Active Substance: SELEXIPAG
     Dosage: 200 MCG, BID
     Route: 048
     Dates: start: 20160708
  9. FUROSEMIDE. [Concomitant]
     Active Substance: FUROSEMIDE
  10. UPTRAVI [Suspect]
     Active Substance: SELEXIPAG
     Indication: PULMONARY ARTERIAL HYPERTENSION
     Dosage: 800 MCG, BID
     Route: 048
  11. NORETHINDRONE [NORETHISTERONE] [Concomitant]
     Active Substance: NORETHINDRONE
     Dosage: 0.35 MG
  12. UPTRAVI [Suspect]
     Active Substance: SELEXIPAG
     Route: 048
  13. VITAMIN D3 [Concomitant]
     Active Substance: CHOLECALCIFEROL

REACTIONS (33)
  - Somnolence [Unknown]
  - Arthralgia [Unknown]
  - Palpitations [Unknown]
  - Muscle spasms [Unknown]
  - Influenza [Unknown]
  - Blood pressure decreased [Unknown]
  - Dyspnoea [Unknown]
  - Nausea [Unknown]
  - Device expulsion [Unknown]
  - Uterine disorder [Unknown]
  - Wound secretion [Unknown]
  - Cough [Unknown]
  - Dizziness [Unknown]
  - Abdominal pain upper [Unknown]
  - Product dose omission issue [Unknown]
  - Facial pain [Unknown]
  - Onychomycosis [Unknown]
  - Headache [Not Recovered/Not Resolved]
  - Pain in extremity [Unknown]
  - Chest discomfort [Unknown]
  - Urinary tract infection [Unknown]
  - Back pain [Unknown]
  - Dry skin [Unknown]
  - Chills [Unknown]
  - Pain in jaw [Not Recovered/Not Resolved]
  - Fatigue [Unknown]
  - Heart rate decreased [Not Recovered/Not Resolved]
  - Sluggishness [Unknown]
  - Malaise [Unknown]
  - Abdominal discomfort [Unknown]
  - Vulvovaginal pain [Unknown]
  - Pain [Not Recovered/Not Resolved]
  - Diarrhoea [Recovering/Resolving]

NARRATIVE: CASE EVENT DATE: 201608
